FAERS Safety Report 6283633-X (Version None)
Quarter: 2009Q3

REPORT INFORMATION
  Report Type: 
  Country: None (occurrence: None)
  Receive Date: 20090724
  Receipt Date: 20090715
  Transmission Date: 20100115
  Serious: Yes (Hospitalization, Other)
  Sender: FDA-Public Use
  Company Number: PHHY2009JP21899

PATIENT
  Sex: Male

DRUGS (9)
  1. TEGRETOL [Suspect]
     Indication: EPILEPSY
     Dosage: 400 MG DAILY
     Route: 048
     Dates: start: 20080507, end: 20080718
  2. TIZANIDINE HCL [Concomitant]
     Dosage: 2 MG
     Route: 048
  3. RENIVACE [Concomitant]
     Dosage: 5 MG
     Route: 048
  4. ARTIST [Concomitant]
     Dosage: 5 MG
     Route: 048
  5. ATELEC [Concomitant]
     Dosage: 20 MG
     Route: 048
  6. AMLODIPINE [Concomitant]
     Dosage: 10 MG
     Route: 048
  7. POLARAMINE [Concomitant]
     Dosage: 6 MG
     Route: 048
  8. MYSLEE [Concomitant]
     Dosage: 5 MG
     Route: 048
     Dates: start: 20080719
  9. DIOVAN [Concomitant]
     Dosage: 80 MG
     Route: 048

REACTIONS (5)
  - ANXIETY [None]
  - COMMUNICATION DISORDER [None]
  - DECREASED APPETITE [None]
  - DEPRESSION [None]
  - EPILEPSY [None]
